FAERS Safety Report 10983238 (Version 2)
Quarter: 2015Q2

REPORT INFORMATION
  Report Type: Spontaneous
  Country: JP (occurrence: JP)
  Receive Date: 20150403
  Receipt Date: 20150515
  Transmission Date: 20150821
  Serious: Yes (Other)
  Sender: FDA-Public Use
  Company Number: JP-PFIZER INC-2015107911

PATIENT
  Age: 54 Year
  Sex: Male
  Weight: 59 kg

DRUGS (8)
  1. SUNRYTHM [Concomitant]
     Active Substance: PILSICAINIDE HYDROCHLORIDE
  2. VASOLAN [Concomitant]
     Active Substance: VERAPAMIL HYDROCHLORIDE
     Dosage: UNK, AS NEEDED
  3. CELECOX [Suspect]
     Active Substance: CELECOXIB
     Indication: POLYMYALGIA RHEUMATICA
     Dosage: 400 MG, DAILY
     Route: 048
     Dates: start: 20111014, end: 20111028
  4. RINGEREAZE [Concomitant]
     Active Substance: LOXOPROFEN SODIUM
  5. MUCOSTA [Concomitant]
     Active Substance: REBAMIPIDE
  6. AMOBAN [Concomitant]
     Active Substance: ZOPICLONE
  7. DIAZEPAM. [Concomitant]
     Active Substance: DIAZEPAM
     Dosage: UNK, AS NEEDED
  8. LENDORMIN [Concomitant]
     Active Substance: BROTIZOLAM

REACTIONS (4)
  - Gamma-glutamyltransferase increased [Unknown]
  - C-reactive protein increased [Unknown]
  - Blood alkaline phosphatase increased [Unknown]
  - Drug ineffective [Unknown]

NARRATIVE: CASE EVENT DATE: 20111014
